FAERS Safety Report 9630492 (Version 2)
Quarter: 2013Q4

REPORT INFORMATION
  Report Type: Spontaneous
  Country: IL (occurrence: IL)
  Receive Date: 20131018
  Receipt Date: 20131018
  Transmission Date: 20140711
  Serious: Yes (Hospitalization, Other)
  Sender: FDA-Public Use
  Company Number: IL-009507513-1309ISR014358

PATIENT
  Sex: Female

DRUGS (1)
  1. FOSALAN [Suspect]
     Indication: OSTEOPOROSIS PROPHYLAXIS
     Dosage: UNK
     Route: 048
     Dates: start: 2000, end: 201310

REACTIONS (4)
  - Ankle impingement [Recovered/Resolved]
  - Femoral neck fracture [Recovered/Resolved]
  - Joint arthroplasty [Unknown]
  - Drug ineffective [Recovered/Resolved]
